FAERS Safety Report 17714618 (Version 2)
Quarter: 2020Q2

REPORT INFORMATION
  Report Type: Spontaneous
  Country: US (occurrence: US)
  Receive Date: 20200427
  Receipt Date: 20200514
  Transmission Date: 20200714
  Serious: Yes (Hospitalization, Other)
  Sender: FDA-Public Use
  Company Number: US-SUPERNUS PHARMACEUTICALS, INC.-2020SUP00069

PATIENT
  Age: 53 Year
  Sex: Male

DRUGS (8)
  1. VIMPAT [Suspect]
     Active Substance: LACOSAMIDE
     Dosage: 200 MG, 2X/DAY IN THE AM AND PM
  2. ONFI [Suspect]
     Active Substance: CLOBAZAM
     Dosage: 5 MG ^BABY DOSE^, 2X/DAY IN THE AM AND IN THE PM
     Dates: start: 202002, end: 2020
  3. TOPROL XL [Concomitant]
     Active Substance: METOPROLOL SUCCINATE
     Dosage: 100 MG, 1X/DAY
  4. OXTELLAR XR [Suspect]
     Active Substance: OXCARBAZEPINE
     Indication: EPILEPSY
     Dosage: UNK
     Route: 048
  5. OXTELLAR XR [Suspect]
     Active Substance: OXCARBAZEPINE
     Dosage: 1200 MG
     Route: 048
     Dates: start: 2019
  6. ONFI [Suspect]
     Active Substance: CLOBAZAM
     Dosage: 10 MG, 2X/DAY IN THE AM AND IN THE PM
     Dates: start: 201911, end: 202002
  7. OXTELLAR XR [Suspect]
     Active Substance: OXCARBAZEPINE
     Dosage: 1800 MG, 1X/DAY NIGHTLY
     Route: 048
  8. LOSARTAN. [Concomitant]
     Active Substance: LOSARTAN
     Dosage: 25 MG, 1X/DAY

REACTIONS (12)
  - Extrasystoles [Unknown]
  - Eye movement disorder [Unknown]
  - Somnolence [Recovering/Resolving]
  - Dehydration [Unknown]
  - Middle insomnia [Unknown]
  - Drug interaction [Unknown]
  - Heart rate decreased [Unknown]
  - Loss of consciousness [Recovered/Resolved]
  - Memory impairment [Recovering/Resolving]
  - Urinary incontinence [Unknown]
  - Seizure [Unknown]
  - Dyspnoea [Recovered/Resolved]

NARRATIVE: CASE EVENT DATE: 202003
